FAERS Safety Report 17680724 (Version 3)
Quarter: 2021Q3

REPORT INFORMATION
  Report Type: Report from Study
  Country: US (occurrence: US)
  Receive Date: 20200417
  Receipt Date: 20210715
  Transmission Date: 20211014
  Serious: Yes (Other)
  Sender: FDA-Public Use
  Company Number: US-BRISTOL-MYERS SQUIBB COMPANY-BMS-2020-030797

PATIENT
  Age: 68 Year
  Sex: Male
  Weight: 102 kg

DRUGS (3)
  1. KLONOPIN [Concomitant]
     Active Substance: CLONAZEPAM
     Indication: PRODUCT USED FOR UNKNOWN INDICATION
     Dosage: UNK
     Route: 065
  2. APIXABAN [Suspect]
     Active Substance: APIXABAN
     Indication: EMBOLISM VENOUS
  3. APIXABAN [Suspect]
     Active Substance: APIXABAN
     Indication: CEREBROVASCULAR ACCIDENT PROPHYLAXIS
     Dosage: 5 MILLIGRAM, BID
     Route: 048
     Dates: start: 2018

REACTIONS (2)
  - Failure to suspend medication [Unknown]
  - Cardiac disorder [Unknown]

NARRATIVE: CASE EVENT DATE: 20200413
